FAERS Safety Report 9892454 (Version 1)
Quarter: 2014Q1

REPORT INFORMATION
  Report Type: Spontaneous
  Country: CH (occurrence: CH)
  Receive Date: 20140212
  Receipt Date: 20140212
  Transmission Date: 20141002
  Serious: Yes (Hospitalization)
  Sender: FDA-Public Use
  Company Number: CH-ASTRAZENECA-2014SE08481

PATIENT
  Age: 85 Year
  Sex: Male

DRUGS (13)
  1. SEROQUEL [Suspect]
     Indication: DEMENTIA
     Route: 048
  2. MST [Suspect]
     Indication: PAIN
     Route: 048
  3. MST [Suspect]
     Indication: PAIN
     Dosage: REDUCED
     Route: 048
  4. METFORMINE [Suspect]
     Indication: TYPE 2 DIABETES MELLITUS
     Route: 048
  5. TILURR RETARD KAPSELN [Suspect]
     Indication: PAIN
     Route: 048
     Dates: start: 20131209, end: 20131213
  6. PANTOPRAZOLE [Suspect]
     Indication: PROPHYLACTIC CHEMOTHERAPY
     Route: 048
     Dates: start: 20131209, end: 20131213
  7. CYMBALTA [Suspect]
     Indication: ANTIDEPRESSANT THERAPY
     Route: 048
  8. HALDOL [Suspect]
     Indication: DEMENTIA
     Route: 048
  9. DISTRANEURIN [Suspect]
     Indication: SLEEP DISORDER
     Route: 048
  10. EBIXA [Suspect]
     Indication: DEMENTIA
     Route: 048
  11. METO ZEROK [Concomitant]
     Indication: ATRIAL FIBRILLATION
     Route: 048
  12. SINTROM [Concomitant]
     Indication: ATRIAL FIBRILLATION
     Route: 048
  13. DAFALGAN [Concomitant]
     Indication: PAIN
     Route: 048

REACTIONS (6)
  - Delirium [Recovering/Resolving]
  - Rash erythematous [Recovered/Resolved]
  - Renal failure chronic [Recovered/Resolved]
  - Hyperkalaemia [Recovered/Resolved]
  - Type I hypersensitivity [Recovered/Resolved]
  - Drug prescribing error [Recovered/Resolved]
